FAERS Safety Report 9309829 (Version 2)
Quarter: 2013Q2

REPORT INFORMATION
  Report Type: Spontaneous
  Country: US (occurrence: US)
  Receive Date: 20130525
  Receipt Date: 20130525
  Transmission Date: 20140414
  Serious: No
  Sender: FDA-Public Use
  Company Number: US201209007799

PATIENT
  Age: 60 Year
  Sex: Female
  Weight: 126.08 kg

DRUGS (6)
  1. BYDUREON 2MG VIAL + SYRINGE [Suspect]
     Indication: TYPE 2 DIABETES MELLITUS
     Route: 058
     Dates: start: 20120827, end: 20130116
  2. BYETTA PEN DISPOSABLE [Suspect]
     Indication: TYPE 2 DIABETES MELLITUS
     Route: 058
     Dates: start: 20130121
  3. BYETTA PEN DISPOSABLE [Suspect]
     Indication: TYPE 2 DIABETES MELLITUS
     Route: 058
     Dates: start: 2009, end: 20120827
  4. BYETTA PEN DISPOSABLE [Suspect]
     Indication: TYPE 2 DIABETES MELLITUS
     Route: 058
     Dates: start: 2009
  5. EXENATIDE 5MCG PEN, DISPOSABLE DEVICE [Suspect]
  6. GLYBURIDE [Concomitant]
     Indication: TYPE 2 DIABETES MELLITUS

REACTIONS (7)
  - Blood glucose increased [Recovered/Resolved]
  - Glycosylated haemoglobin increased [Unknown]
  - Protein urine present [Recovered/Resolved]
  - Nausea [Recovered/Resolved]
  - Weight decreased [Not Recovered/Not Resolved]
  - Decreased appetite [Not Recovered/Not Resolved]
  - Vomiting [Recovered/Resolved]
